FAERS Safety Report 9486430 (Version 9)
Quarter: 2020Q1

REPORT INFORMATION
  Report Type: Report from Study
  Country: US (occurrence: US)
  Receive Date: 20130829
  Receipt Date: 20200108
  Transmission Date: 20200409
  Serious: Yes (Hospitalization, Other)
  Sender: FDA-Public Use
  Company Number: US-SANOFI-AVENTIS-2013SA074849

PATIENT
  Age: 61 Year
  Sex: Male

DRUGS (6)
  1. CLOPIDOGREL [Concomitant]
     Active Substance: CLOPIDOGREL BISULFATE
     Indication: ANTICOAGULANT THERAPY
     Dosage: UNK
     Dates: start: 2017
  2. OREGANO OIL [Concomitant]
     Indication: IMMUNE SYSTEM DISORDER
     Dosage: UNK
     Dates: start: 2017
  3. VITAMIN B12 [Concomitant]
     Active Substance: CYANOCOBALAMIN
     Indication: ASTHENIA
     Dosage: UNK
     Dates: start: 2017
  4. TERIFLUNOMIDE. [Suspect]
     Active Substance: TERIFLUNOMIDE
     Indication: MULTIPLE SCLEROSIS
     Dosage: 14 MG,QD
     Route: 048
     Dates: start: 20121116
  5. TERIFLUNOMIDE. [Suspect]
     Active Substance: TERIFLUNOMIDE
     Dosage: 14 MG, QD
     Route: 048
     Dates: start: 20180223
  6. CELEBREX [Suspect]
     Active Substance: CELECOXIB
     Dosage: UNK UNK,UNK
     Route: 065

REACTIONS (27)
  - Rash [Not Recovered/Not Resolved]
  - Muscle injury [Not Recovered/Not Resolved]
  - Memory impairment [Not Recovered/Not Resolved]
  - Blood cholesterol abnormal [Recovering/Resolving]
  - Renal disorder [Not Recovered/Not Resolved]
  - Herpes zoster [Unknown]
  - Feeling abnormal [Not Recovered/Not Resolved]
  - Constipation [Recovering/Resolving]
  - Cardiac disorder [Recovering/Resolving]
  - Pain [Unknown]
  - Hypertension [Recovering/Resolving]
  - Unevaluable event [Not Recovered/Not Resolved]
  - Fatigue [Unknown]
  - Nightmare [Recovering/Resolving]
  - Gastric disorder [Recovering/Resolving]
  - Dyspnoea [Not Recovered/Not Resolved]
  - Asthma [Recovering/Resolving]
  - Pain [Recovering/Resolving]
  - Asthenia [Not Recovered/Not Resolved]
  - Heart rate irregular [Not Recovered/Not Resolved]
  - Muscle spasms [Recovering/Resolving]
  - Nasopharyngitis [Recovering/Resolving]
  - Diabetes mellitus [Recovering/Resolving]
  - Hospitalisation [Unknown]
  - Malaise [Not Recovered/Not Resolved]
  - Blood cholesterol increased [Recovering/Resolving]
  - Gastrooesophageal reflux disease [Recovering/Resolving]

NARRATIVE: CASE EVENT DATE: 2014
